FAERS Safety Report 22779156 (Version 2)
Quarter: 2024Q2

REPORT INFORMATION
  Report Type: Report from Study
  Country: JP (occurrence: JP)
  Receive Date: 20230802
  Receipt Date: 20240617
  Transmission Date: 20240716
  Serious: Yes (Death, Other)
  Sender: FDA-Public Use
  Company Number: JP-MSD-2203JPN004249J

PATIENT
  Age: 87 Year
  Sex: Female
  Weight: 39 kg

DRUGS (5)
  1. CILASTATIN\IMIPENEM\RELEBACTAM MONOHYDRATE [Suspect]
     Active Substance: CILASTATIN\IMIPENEM\RELEBACTAM MONOHYDRATE
     Indication: Pneumonia
     Dosage: 1.25 GRAM, QID
     Route: 041
     Dates: start: 20220526, end: 20220529
  2. MEROPENEM [Concomitant]
     Active Substance: MEROPENEM
     Indication: Pneumonia
     Dosage: 0.5 GRAM, TID
     Route: 065
     Dates: start: 20220523, end: 20220525
  3. CEFOCEF [CEFOPERAZONE SODIUM;SULBACTAM SODIUM] [Concomitant]
     Indication: Pneumonia
     Dosage: 1 GRAM, BID
     Route: 065
     Dates: start: 20220510, end: 20220514
  4. VANCOMYCIN HYDROCHLORIDE [Concomitant]
     Active Substance: VANCOMYCIN HYDROCHLORIDE
     Indication: Pneumonia
     Dosage: 0.5 GRAM, QD
     Route: 065
     Dates: start: 20220515, end: 20220518
  5. CEFMETAZOLE SODIUM [Concomitant]
     Active Substance: CEFMETAZOLE SODIUM
     Indication: Pneumonia
     Dosage: 1 GRAM, BID
     Route: 065
     Dates: start: 20220519, end: 20220523

REACTIONS (3)
  - Pneumonia [Fatal]
  - Product use in unapproved indication [Unknown]
  - Overdose [Unknown]

NARRATIVE: CASE EVENT DATE: 20220526
